FAERS Safety Report 8963238 (Version 1)
Quarter: 2012Q4

REPORT INFORMATION
  Report Type: 
  Country: JP (occurrence: JP)
  Receive Date: 20121213
  Receipt Date: 20121213
  Transmission Date: 20130627
  Serious: Yes (Other)
  Sender: FDA-Public Use
  Company Number: CHNY2012JP000697

PATIENT
  Age: 73 Year
  Sex: Female

DRUGS (1)
  1. NICOTINELL [Suspect]
     Indication: SMOKING CESSATION THERAPY
     Dosage: 35 mg, UNK
     Route: 062

REACTIONS (2)
  - Blood pressure increased [Unknown]
  - Insomnia [Unknown]
